FAERS Safety Report 21711059 (Version 1)
Quarter: 2022Q4

REPORT INFORMATION
  Report Type: Spontaneous
  Country: US (occurrence: US)
  Receive Date: 20221212
  Receipt Date: 20221212
  Transmission Date: 20230112
  Serious: No
  Sender: FDA-Public Use
  Company Number: US-QILU PHARMACEUTICAL CO.LTD.-QLU-000254-2021

PATIENT
  Age: 21 Year
  Sex: Female

DRUGS (2)
  1. CEFTRIAXONE [Suspect]
     Active Substance: CEFTRIAXONE
     Indication: Antibiotic therapy
     Dosage: 2 GRAM, QD
     Route: 042
     Dates: start: 20211210, end: 202112
  2. CEFTRIAXONE [Suspect]
     Active Substance: CEFTRIAXONE
     Dosage: 1 GRAM, QD
     Route: 042
     Dates: start: 202112

REACTIONS (1)
  - Migraine [Not Recovered/Not Resolved]

NARRATIVE: CASE EVENT DATE: 20211211
